FAERS Safety Report 16584403 (Version 2)
Quarter: 2019Q3

REPORT INFORMATION
  Report Type: Spontaneous
  Country: FR (occurrence: FR)
  Receive Date: 20190717
  Receipt Date: 20190724
  Transmission Date: 20191004
  Serious: Yes (Hospitalization)
  Sender: FDA-Public Use
  Company Number: FR-AMREGENT-20191498

PATIENT
  Age: 70 Year
  Sex: Male

DRUGS (10)
  1. TARDYFERON [Concomitant]
     Active Substance: FERROUS SULFATE
     Dosage: 160 MG, 1 CYCLICAL
     Route: 048
  2. ALDACTONE [Concomitant]
     Active Substance: SPIRONOLACTONE
     Dosage: 75 MG
     Route: 048
     Dates: start: 20160527
  3. PARIET [Concomitant]
     Active Substance: RABEPRAZOLE SODIUM
     Dosage: 10 MG
     Route: 048
     Dates: start: 2010
  4. LASILIX [Concomitant]
     Active Substance: FUROSEMIDE
     Dosage: 80 MG
     Route: 048
     Dates: start: 20160527
  5. AVLOCARDYL L. P [Concomitant]
     Dosage: 1 DOSAGE FORMS
     Route: 048
     Dates: start: 2016, end: 20190604
  6. IRBESARTAN. [Concomitant]
     Active Substance: IRBESARTAN
     Dosage: 150 MG
     Route: 048
     Dates: start: 201212
  7. FERINJECT [Suspect]
     Active Substance: FERRIC CARBOXYMALTOSE
     Dosage: 1 GM
     Route: 041
     Dates: start: 20190125, end: 20190125
  8. APIDRA [Concomitant]
     Active Substance: INSULIN GLULISINE
     Dosage: 8 IU(ADJUSTED BASED ON LEVELS)
     Route: 058
     Dates: start: 2010
  9. LANTUS SOLOSTAR [Concomitant]
     Active Substance: INSULIN GLARGINE
     Dosage: 26 IU
     Route: 058
     Dates: start: 2010
  10. PANTOPRAZOLE [Concomitant]
     Active Substance: PANTOPRAZOLE
     Dosage: 40 MG
     Route: 048
     Dates: start: 2016

REACTIONS (1)
  - Ascites [Not Recovered/Not Resolved]

NARRATIVE: CASE EVENT DATE: 20190228
